FAERS Safety Report 13309292 (Version 4)
Quarter: 2017Q2

REPORT INFORMATION
  Report Type: Spontaneous
  Country: JP (occurrence: JP)
  Receive Date: 20170309
  Receipt Date: 20170605
  Transmission Date: 20170830
  Serious: Yes (Hospitalization, Other)
  Sender: FDA-Public Use
  Company Number: JP-PFIZER INC-2017102390

PATIENT
  Age: 69 Year
  Sex: Female

DRUGS (7)
  1. CELECOX [Suspect]
     Active Substance: CELECOXIB
     Indication: PROCEDURAL PAIN
     Dosage: 100 MG, 2X/DAY
     Route: 048
     Dates: start: 20170214, end: 20170301
  2. PIOGLITAZONE. [Concomitant]
     Active Substance: PIOGLITAZONE
     Dosage: 1, ONCE DAILY
     Route: 065
     Dates: end: 20170301
  3. REBAMIPIDE [Concomitant]
     Active Substance: REBAMIPIDE
     Dosage: 2, TWICE DAILY
     Route: 065
     Dates: start: 20170214, end: 20170301
  4. WARFARIN POTASSIUM [Interacting]
     Active Substance: WARFARIN POTASSIUM
     Dosage: 2 MG, 1X/DAY
     Route: 048
     Dates: end: 20170301
  5. WARFARIN POTASSIUM [Interacting]
     Active Substance: WARFARIN POTASSIUM
     Dosage: 0.5 MG, ONCE DAILY
     Route: 048
     Dates: end: 20170301
  6. CRESTOR [Concomitant]
     Active Substance: ROSUVASTATIN CALCIUM
     Dosage: 4, ONCE DAILY
     Route: 065
     Dates: end: 20170301
  7. AMLODIPINE [Concomitant]
     Active Substance: AMLODIPINE BESYLATE
     Dosage: 1, ONCE DAILY
     Route: 065
     Dates: end: 20170301

REACTIONS (3)
  - Drug interaction [Recovered/Resolved]
  - Gastric ulcer haemorrhage [Recovered/Resolved]
  - International normalised ratio increased [Recovered/Resolved]

NARRATIVE: CASE EVENT DATE: 20170301
